FAERS Safety Report 9039455 (Version 1)
Quarter: 2013Q1

REPORT INFORMATION
  Report Type: Report from Study
  Country: US (occurrence: US)
  Receive Date: 20130129
  Receipt Date: 20130129
  Transmission Date: 20140127
  Serious: No
  Sender: FDA-Public Use
  Company Number: US-ABBOTT-12P-163-0934942-00

PATIENT
  Age: 48 None
  Sex: Female

DRUGS (4)
  1. HUMIRA 40 MG/0.8 ML PEN [Suspect]
     Indication: PSORIATIC ARTHROPATHY
     Route: 058
     Dates: start: 201201
  2. ALL DAY CALCIUM ER [Concomitant]
     Indication: PRODUCT USED FOR UNKNOWN INDICATION
  3. CVS GLUCOSAMINE-CHONDR [Concomitant]
     Indication: PRODUCT USED FOR UNKNOWN INDICATION
  4. COMPLETE MULTIVITAMIN [Concomitant]
     Indication: PRODUCT USED FOR UNKNOWN INDICATION

REACTIONS (5)
  - Sensation of heaviness [Unknown]
  - Tremor [Unknown]
  - Middle insomnia [Unknown]
  - Dizziness [Unknown]
  - Pharyngitis streptococcal [Unknown]
